FAERS Safety Report 6448266-0 (Version None)
Quarter: 2009Q4

REPORT INFORMATION
  Report Type: 
  Country: None (occurrence: None)
  Receive Date: 20091120
  Receipt Date: 20091109
  Transmission Date: 20100525
  Serious: Yes (Hospitalization, Other)
  Sender: FDA-Public Use
  Company Number: JP-BAYER-200911778BYL

PATIENT
  Age: 72 Year
  Sex: Male
  Weight: 69 kg

DRUGS (12)
  1. NEXAVAR [Suspect]
     Indication: RENAL CELL CARCINOMA
     Dosage: TOTAL DAILY DOSE: 800 MG  UNIT DOSE: 200 MG
     Route: 048
     Dates: start: 20090422, end: 20090501
  2. NEXAVAR [Suspect]
     Dosage: UNIT DOSE: 200 MG
     Route: 048
     Dates: start: 20090512, end: 20090601
  3. NEXAVAR [Suspect]
     Dosage: UNIT DOSE: 200 MG
     Route: 048
     Dates: start: 20090630, end: 20090728
  4. NEXAVAR [Suspect]
     Dosage: UNIT DOSE: 200 MG
     Route: 048
     Dates: start: 20090909, end: 20090929
  5. ZYLORIC [Concomitant]
     Dosage: BEFORE BEGINNING TO ADMINISTRATION
     Route: 048
  6. NORVASC [Concomitant]
     Dosage: BEFORE BEGINNING TO ADMINISTRATION
     Route: 048
  7. DIOVAN [Concomitant]
     Dosage: BEFORE BEGINNING TO ADMINISTRATION
     Route: 048
  8. TIMOPTIC [Concomitant]
     Dosage: BEFORE BEGINNING TO ADMINISTRATION
     Route: 031
  9. CRAVIT [Concomitant]
     Dosage: BEFORE BEGINNING TO ADMINISTRATION
     Route: 031
  10. ODOMEL [Concomitant]
     Dosage: BEFORE BEGINNING TO ADMINISTRATION
     Route: 031
  11. FLUMETHOLON [Concomitant]
     Route: 031
     Dates: start: 20090503
  12. OFLOXACIN [Concomitant]
     Route: 031
     Dates: start: 20090514

REACTIONS (15)
  - ABDOMINAL PAIN [None]
  - DECREASED APPETITE [None]
  - FATIGUE [None]
  - HEPATIC FUNCTION ABNORMAL [None]
  - HYPERTENSION [None]
  - LIPASE INCREASED [None]
  - MALAISE [None]
  - NAUSEA [None]
  - PALMAR-PLANTAR ERYTHRODYSAESTHESIA SYNDROME [None]
  - PLATELET COUNT DECREASED [None]
  - PRURITUS [None]
  - PYREXIA [None]
  - RASH [None]
  - UPPER RESPIRATORY TRACT INFLAMMATION [None]
  - VOMITING [None]
